FAERS Safety Report 9981168 (Version 2)
Quarter: 2014Q1

REPORT INFORMATION
  Report Type: Spontaneous
  Country: PH (occurrence: PH)
  Receive Date: 20140307
  Receipt Date: 20140307
  Transmission Date: 20141002
  Serious: Yes (Death)
  Sender: FDA-Public Use
  Company Number: PH-009507513-1312PHL006006

PATIENT
  Age: 65 Year
  Sex: Male

DRUGS (2)
  1. JANUMET [Suspect]
     Indication: BLOOD GLUCOSE
     Dosage: 1 TABLET, QD
     Dates: start: 20121017
  2. SOLOSA [Concomitant]
     Indication: BLOOD GLUCOSE

REACTIONS (3)
  - Weight decreased [Fatal]
  - Hypokalaemia [Fatal]
  - Asthenia [Fatal]
